FAERS Safety Report 14765116 (Version 4)
Quarter: 2019Q1

REPORT INFORMATION
  Report Type: Spontaneous
  Country: FR (occurrence: FR)
  Receive Date: 20180416
  Receipt Date: 20190128
  Transmission Date: 20190417
  Serious: Yes (Death, Other)
  Sender: FDA-Public Use
  Company Number: FR-PFIZER INC-2018152557

PATIENT
  Age: 68 Year
  Sex: Female

DRUGS (7)
  1. MITOMYCIN. [Suspect]
     Active Substance: MITOMYCIN
     Indication: BENIGN BREAST NEOPLASM
     Dosage: 45 MG/M2, UNK
  2. CYCLOPHOSPHAMIDE. [Suspect]
     Active Substance: CYCLOPHOSPHAMIDE
     Indication: BENIGN BREAST NEOPLASM
     Dosage: 1500 MG/M2, UNK
  3. VINCRISTINE SULFATE. [Suspect]
     Active Substance: VINCRISTINE SULFATE
     Indication: BENIGN BREAST NEOPLASM
     Dosage: 6 MG/M2, UNK
  4. VINDESINE [Suspect]
     Active Substance: VINDESINE
     Indication: BENIGN BREAST NEOPLASM
     Dosage: 12 MG/M2, UNK
  5. FLUOROURACIL. [Suspect]
     Active Substance: FLUOROURACIL
     Indication: BENIGN BREAST NEOPLASM
     Dosage: 1500 MG/M2, UNK
  6. VP16 [Suspect]
     Active Substance: ETOPOSIDE
     Indication: BENIGN BREAST NEOPLASM
     Dosage: 450 MG/M2, UNK
  7. DOXORUBICIN HCL [Suspect]
     Active Substance: DOXORUBICIN HYDROCHLORIDE
     Indication: BENIGN BREAST NEOPLASM
     Dosage: 200 MG/M2, UNK

REACTIONS (2)
  - Second primary malignancy [Fatal]
  - Acute promyelocytic leukaemia [Fatal]
